FAERS Safety Report 8612808-7 (Version None)
Quarter: 2012Q3

REPORT INFORMATION
  Report Type: 
  Country: None (occurrence: None)
  Receive Date: 20120822
  Receipt Date: 20111019
  Transmission Date: 20120928
  Serious: No
  Sender: FDA-Public Use
  Company Number: US-ASTRAZENECA-2010SE25697

PATIENT
  Age: 50 Year
  Sex: Female

DRUGS (2)
  1. SYMBICORT [Suspect]
     Route: 055
  2. NEXIUM [Suspect]
     Route: 048

REACTIONS (3)
  - PAIN [None]
  - DRUG DOSE OMISSION [None]
  - ASTHMA [None]
